FAERS Safety Report 6419096-0 (Version None)
Quarter: 2009Q4

REPORT INFORMATION
  Report Type: 
  Country: None (occurrence: None)
  Receive Date: 20091028
  Receipt Date: 20091028
  Transmission Date: 20100525
  Serious: Yes (Hospitalization)
  Sender: FDA-Public Use
  Company Number: None

PATIENT
  Age: 37 Year
  Sex: Female
  Weight: 79.8331 kg

DRUGS (1)
  1. AVELOX [Suspect]
     Indication: BRONCHITIS
     Dosage: 400MG ONCE DAILY/10 DAYS PO
     Route: 048
     Dates: start: 20091022, end: 20091024

REACTIONS (15)
  - ABASIA [None]
  - AMNESIA [None]
  - BURNING SENSATION [None]
  - CHEST DISCOMFORT [None]
  - CHILLS [None]
  - DIPLOPIA [None]
  - DIZZINESS [None]
  - DYSPNOEA [None]
  - DYSSTASIA [None]
  - FATIGUE [None]
  - HYPOAESTHESIA [None]
  - PARAESTHESIA [None]
  - PRESYNCOPE [None]
  - SENSATION OF HEAVINESS [None]
  - TREMOR [None]
